FAERS Safety Report 25422766 (Version 3)
Quarter: 2025Q3

REPORT INFORMATION
  Report Type: Report from Study
  Country: US (occurrence: US)
  Receive Date: 20250611
  Receipt Date: 20250915
  Transmission Date: 20251021
  Serious: No
  Sender: DECIPHERA PHARMACEUTICALS
  Company Number: US-DECIPHERA PHARMACEUTICALS LLC-2025US000669

PATIENT
  Age: 40 Year
  Sex: Female
  Weight: 83.887 kg

DRUGS (2)
  1. ROMVIMZA [Suspect]
     Active Substance: VIMSELTINIB
     Indication: Connective tissue neoplasm
     Dosage: 30 MILLIGRAM, TWICE WEEKLY (ON MONDAY AND FRIDAY
     Route: 048
     Dates: start: 20250514, end: 202505
  2. ROMVIMZA [Suspect]
     Active Substance: VIMSELTINIB
     Indication: Soft tissue neoplasm
     Dosage: 30 MILLIGRAM, TWICE WEEKLY
     Route: 048
     Dates: start: 20250526, end: 202506

REACTIONS (6)
  - Periorbital swelling [Unknown]
  - Malaise [Unknown]
  - COVID-19 [Unknown]
  - Pruritus [Unknown]
  - Peripheral swelling [Unknown]
  - Fatigue [Recovering/Resolving]

NARRATIVE: CASE EVENT DATE: 20250101
